FAERS Safety Report 7110582-7 (Version None)
Quarter: 2010Q4

REPORT INFORMATION
  Report Type: 
  Country: None (occurrence: None)
  Receive Date: 20101118
  Receipt Date: 20101109
  Transmission Date: 20110411
  Serious: Yes (Other)
  Sender: FDA-Public Use
  Company Number: US-JNJFOC-20100607580

PATIENT
  Sex: Male

DRUGS (1)
  1. LEVAQUIN [Suspect]
     Indication: INFECTION
     Route: 048

REACTIONS (5)
  - ARTHRALGIA [None]
  - HOMICIDAL IDEATION [None]
  - SUICIDAL IDEATION [None]
  - TENDON INJURY [None]
  - TENDONITIS [None]
